FAERS Safety Report 10006074 (Version 5)
Quarter: 2014Q2

REPORT INFORMATION
  Report Type: Spontaneous
  Country: US (occurrence: US)
  Receive Date: 20140313
  Receipt Date: 20140424
  Transmission Date: 20141212
  Serious: Yes (Death, Life-Threatening, Hospitalization)
  Sender: FDA-Public Use
  Company Number: US-JNJFOC-20140306508

PATIENT
  Age: 75 Year
  Sex: Female
  Weight: 57 kg

DRUGS (12)
  1. XARELTO [Suspect]
     Indication: CEREBROVASCULAR ACCIDENT PROPHYLAXIS
     Route: 048
     Dates: start: 20120724, end: 20131001
  2. XARELTO [Suspect]
     Indication: ATRIAL FIBRILLATION
     Route: 048
     Dates: start: 20120724, end: 20131001
  3. CELECOXIB [Suspect]
     Indication: PRODUCT USED FOR UNKNOWN INDICATION
     Route: 048
  4. ATORVASTATIN [Concomitant]
     Route: 048
  5. CALCIUM AND VITAMIN D [Concomitant]
     Route: 048
  6. DILTIAZEM [Concomitant]
     Route: 048
  7. ERGOCALCIFEROL [Concomitant]
     Dosage: 50,000 UNITS
     Route: 048
  8. FOLIC ACID [Concomitant]
     Dosage: 50,000 UNITS
     Route: 048
  9. FUROSEMIDE [Concomitant]
     Dosage: IN AM
     Route: 048
  10. LEVOTHYROXINE [Concomitant]
     Route: 048
  11. METOPROLOL XL [Concomitant]
     Route: 048
  12. POTASSIUM CHLORIDE [Concomitant]
     Route: 048

REACTIONS (3)
  - Subarachnoid haemorrhage [Fatal]
  - Cerebral haematoma [Fatal]
  - Haematemesis [Fatal]
